FAERS Safety Report 11489550 (Version 1)
Quarter: 2015Q3

REPORT INFORMATION
  Report Type: Spontaneous
  Country: US (occurrence: US)
  Receive Date: 20150910
  Receipt Date: 20150910
  Transmission Date: 20151125
  Serious: Yes (Hospitalization)
  Sender: FDA-Public Use
  Company Number: US-ROCHE-1450438

PATIENT
  Age: 47 Year
  Sex: Female

DRUGS (8)
  1. DIVALPROEX SODIUM. [Concomitant]
     Active Substance: DIVALPROEX SODIUM
     Dosage: DOSE INCREASED FURTHER DURING WEEK 7 OF PEG-INTERFERON AND RIBAVIRIN TREATMENT
     Route: 065
  2. DIVALPROEX SODIUM. [Concomitant]
     Active Substance: DIVALPROEX SODIUM
     Dosage: INCREASED DOSE DURING HOPSITALISATION
     Route: 065
  3. RISPERIDONE. [Concomitant]
     Active Substance: RISPERIDONE
     Route: 065
  4. DIVALPROEX SODIUM. [Concomitant]
     Active Substance: DIVALPROEX SODIUM
     Route: 065
  5. DIVALPROEX SODIUM. [Concomitant]
     Active Substance: DIVALPROEX SODIUM
     Dosage: DOSE INCREASED DUE TO DELUSIONS AND HALLUCINATIONS
     Route: 065
  6. RIBAVIRIN. [Suspect]
     Active Substance: RIBAVIRIN
     Indication: HEPATITIS C
     Route: 048
     Dates: start: 200301
  7. RISPERIDONE. [Concomitant]
     Active Substance: RISPERIDONE
     Route: 065
  8. PEG-INTERFERON ALFA 2A [Suspect]
     Active Substance: PEGINTERFERON ALFA-2A
     Indication: HEPATITIS C
     Route: 058
     Dates: start: 200301

REACTIONS (3)
  - Hallucination, visual [Recovered/Resolved]
  - Bipolar disorder [Recovered/Resolved]
  - Hallucination, auditory [Recovered/Resolved]
